FAERS Safety Report 18441483 (Version 1)
Quarter: 2020Q4

REPORT INFORMATION
  Report Type: Spontaneous
  Country: US (occurrence: US)
  Receive Date: 20201029
  Receipt Date: 20201029
  Transmission Date: 20210114
  Serious: Yes (Other)
  Sender: FDA-Public Use
  Company Number: None

PATIENT
  Age: 65 Year
  Sex: Female
  Weight: 78.4 kg

DRUGS (10)
  1. LOSARTAN. [Concomitant]
     Active Substance: LOSARTAN
  2. VITAMIN D3 2000 IU [Concomitant]
  3. ONDANSETRON. [Concomitant]
     Active Substance: ONDANSETRON
  4. METOPROLOL XL 25MG [Concomitant]
  5. ELIQUIS [Concomitant]
     Active Substance: APIXABAN
  6. ZEJULA [Suspect]
     Active Substance: NIRAPARIB
     Indication: OVARIAN CANCER
     Route: 048
  7. ASPIRIN 81 MG [Concomitant]
     Active Substance: ASPIRIN
  8. ATORVASTATIN 40 MG [Concomitant]
     Active Substance: ATORVASTATIN
  9. METFORMIN [Concomitant]
     Active Substance: METFORMIN HYDROCHLORIDE
  10. OXYCODONE 5 MG [Concomitant]
     Active Substance: OXYCODONE

REACTIONS (1)
  - Thrombocytopenia [None]

NARRATIVE: CASE EVENT DATE: 20201022
